FAERS Safety Report 6065504-7 (Version None)
Quarter: 2009Q1

REPORT INFORMATION
  Report Type: 
  Country: None (occurrence: None)
  Receive Date: 20090204
  Receipt Date: 20090202
  Transmission Date: 20090719
  Serious: Yes (Hospitalization)
  Sender: FDA-Public Use
  Company Number: US-ELI_LILLY_AND_COMPANY-US200902000187

PATIENT
  Age: 77 Year
  Sex: Male

DRUGS (4)
  1. ALIMTA [Suspect]
     Indication: NON-SMALL CELL LUNG CANCER
  2. CARBOPLATIN [Concomitant]
     Indication: NON-SMALL CELL LUNG CANCER
  3. VITAMINS NOS [Concomitant]
     Indication: VITAMIN SUPPLEMENTATION
  4. DECADRON                                /CAN/ [Concomitant]

REACTIONS (1)
  - VASCULITIS [None]
